FAERS Safety Report 21816059 (Version 3)
Quarter: 2023Q1

REPORT INFORMATION
  Report Type: Spontaneous
  Country: PT (occurrence: PT)
  Receive Date: 20230104
  Receipt Date: 20230324
  Transmission Date: 20230418
  Serious: Yes (Disabling, Other)
  Sender: FDA-Public Use
  Company Number: None

PATIENT
  Age: 39 Year
  Sex: Female
  Weight: 54 kg

DRUGS (3)
  1. GONAL-F [Suspect]
     Active Substance: FOLLITROPIN
     Indication: Assisted fertilisation
     Dosage: INJECTABLE SOLUTION IN PRE-FILLED PEN, 300 IU AT NIGHT,
     Route: 058
     Dates: start: 20221121, end: 20221127
  2. ORGALUTRAN [Concomitant]
     Active Substance: GANIRELIX ACETATE
     Indication: Assisted fertilisation
     Dosage: STRENGTH: 0.25 MG/0.5 ML, INJECTABLE SOLUTION IN PRE-FILLED SYRINGE
     Route: 058
     Dates: start: 20221126
  3. LEVOTHYROXINE SODIUM [Concomitant]
     Active Substance: LEVOTHYROXINE SODIUM
     Indication: Product used for unknown indication
     Route: 048

REACTIONS (6)
  - Paraesthesia [Recovered/Resolved]
  - Back pain [Recovered/Resolved]
  - Breast pain [Unknown]
  - Sacral pain [Recovered/Resolved]
  - Abdominal pain lower [Recovered/Resolved]
  - Headache [Recovered/Resolved]

NARRATIVE: CASE EVENT DATE: 20221121
